FAERS Safety Report 11119171 (Version 1)
Quarter: 2015Q2

REPORT INFORMATION
  Report Type: Spontaneous
  Country: US (occurrence: None)
  Receive Date: 20150515
  Receipt Date: 20150515
  Transmission Date: 20150821
  Serious: No
  Sender: FDA-Public Use
  Company Number: None

PATIENT
  Sex: Male
  Weight: 40.82 kg

DRUGS (1)
  1. GENERIC KEPPRA [Suspect]
     Active Substance: LEVETIRACETAM
     Indication: SEIZURE
     Dosage: AGE 18 TO NOW; 1500MG AM; 2000 MG PM
     Route: 048

REACTIONS (1)
  - Seizure [None]
